FAERS Safety Report 11360065 (Version 3)
Quarter: 2015Q3

REPORT INFORMATION
  Report Type: Spontaneous
  Country: CN (occurrence: CN)
  Receive Date: 20150810
  Receipt Date: 20150824
  Transmission Date: 20151125
  Serious: No
  Sender: FDA-Public Use
  Company Number: CN-009507513-1508CHN003097

PATIENT
  Age: 53 Year
  Sex: Female
  Weight: 58 kg

DRUGS (18)
  1. LACTULOSE. [Concomitant]
     Active Substance: LACTULOSE
     Indication: LAXATIVE SUPPORTIVE CARE
     Dosage: 45 ML/CC, TID
     Route: 048
     Dates: start: 20150715, end: 20150715
  2. METOCLOPRAMIDE. [Concomitant]
     Active Substance: METOCLOPRAMIDE
     Indication: PROPHYLAXIS OF NAUSEA AND VOMITING
     Dosage: 10 MG, QD
     Route: 030
     Dates: start: 20150713, end: 20150715
  3. SPLEEN EXTRACT [Concomitant]
     Indication: IMMUNE ENHANCEMENT THERAPY
     Dosage: 10.0 ML/CC QD
     Route: 041
     Dates: start: 20150708
  4. TRAMADOL HYDROCHLORIDE. [Concomitant]
     Active Substance: TRAMADOL HYDROCHLORIDE
     Indication: ANALGESIC THERAPY
     Dosage: 0.1 G DAILY, FREQUENCY: ST
     Route: 030
     Dates: start: 20150715, end: 20150715
  5. TROPISETRON [Concomitant]
     Active Substance: TROPISETRON
     Indication: PROPHYLAXIS OF NAUSEA AND VOMITING
     Dosage: 5 MG, BID
     Route: 042
     Dates: start: 20150713, end: 20150715
  6. EMEND [Suspect]
     Active Substance: APREPITANT
     Dosage: 80 MG, QD, DAY 2 AND 3
     Route: 048
     Dates: start: 20150714, end: 20150715
  7. CISPLATIN. [Suspect]
     Active Substance: CISPLATIN
     Indication: CHEMOTHERAPY
     Dosage: 40 MG, QD, DAY 1; TREATMENT CYCLE 1/UNK, TREATMENT REGIMEN GP CHEMOTHERAPY
     Dates: start: 20150713, end: 20150713
  8. LANSOPRAZOLE. [Concomitant]
     Active Substance: LANSOPRAZOLE
     Indication: PROPHYLAXIS OF NAUSEA AND VOMITING
     Dosage: 30 MG, QD
     Route: 041
     Dates: start: 20150713, end: 20150715
  9. DROTAVERINE HYDROCHLORIDE [Concomitant]
     Active Substance: DROTAVERINE HYDROCHLORIDE
     Indication: MUSCLE SPASMS
     Dosage: 40 MG, QD
     Route: 030
     Dates: start: 20150715, end: 20150717
  10. LENTINAN [Concomitant]
     Active Substance: LENTINAN
     Indication: IMMUNE ENHANCEMENT THERAPY
     Dosage: 1 MG, QD
     Route: 041
     Dates: start: 20150708, end: 20150710
  11. CISPLATIN. [Suspect]
     Active Substance: CISPLATIN
     Dosage: 30 MG, QD, DAY 2 AND 3; TREATMENT CYCLE 1/UNK, TREATMENT REGIMEN GP CHEMOTHERAPY
     Dates: start: 20150714, end: 20150715
  12. GEMCITABINE HYDROCHLORIDE. [Suspect]
     Active Substance: GEMCITABINE HYDROCHLORIDE
     Indication: CHEMOTHERAPY
     Dosage: 1.6 G, D1, D8; TREATMENT CYCLE 1/UNK, TREATMENT REGIMEN GP CHEMOTHERAPY
     Route: 041
     Dates: start: 20150713, end: 20150722
  13. ESOMEPRAZOLE MAGNESIUM. [Concomitant]
     Active Substance: ESOMEPRAZOLE MAGNESIUM
     Indication: PROPHYLAXIS
     Dosage: 40 MG DAILY, FREQUENCY: ST
     Route: 042
     Dates: start: 20150715, end: 20150715
  14. DEXAMETHASONE. [Concomitant]
     Active Substance: DEXAMETHASONE
     Indication: PROPHYLAXIS OF NAUSEA AND VOMITING
     Dosage: 10 MG, QD
     Route: 041
     Dates: start: 20150713, end: 20150715
  15. EMEND [Suspect]
     Active Substance: APREPITANT
     Indication: PROPHYLAXIS OF NAUSEA AND VOMITING
     Dosage: 125 MG, DAY1
     Route: 048
     Dates: start: 20150713, end: 20150713
  16. MAGNESIUM ISOGLYCYRRHIZINATE [Concomitant]
     Indication: PROPHYLAXIS OF NAUSEA AND VOMITING
     Dosage: 40 ML/CC, QD
     Route: 041
     Dates: start: 20150713, end: 20150715
  17. ESTAZOLAM. [Concomitant]
     Active Substance: ESTAZOLAM
     Indication: SLEEP DISORDER
     Dosage: 1 MG, FREQUENCY: QN
     Route: 048
     Dates: start: 20150713
  18. GLYCERIN/GLYCERIN (+) MENTHOL (+) XYLITOL [Concomitant]
     Indication: LAXATIVE SUPPORTIVE CARE
     Dosage: 40 ML, PRN
     Dates: start: 20150716, end: 20150716

REACTIONS (2)
  - White blood cell count decreased [Recovered/Resolved]
  - White blood cell count decreased [Recovered/Resolved]

NARRATIVE: CASE EVENT DATE: 20150719
